FAERS Safety Report 6177336-X (Version None)
Quarter: 2009Q2

REPORT INFORMATION
  Report Type: 
  Country: None (occurrence: None)
  Receive Date: 20090504
  Receipt Date: 20090424
  Transmission Date: 20091009
  Serious: Yes (Hospitalization)
  Sender: FDA-Public Use
  Company Number: US-BIOGENIDEC-2009BI012620

PATIENT
  Sex: Female

DRUGS (2)
  1. AVONEX [Suspect]
     Indication: MULTIPLE SCLEROSIS
     Route: 030
     Dates: start: 19990101, end: 20000101
  2. FIORICET [Concomitant]
     Indication: MIGRAINE
     Route: 048

REACTIONS (7)
  - INAPPROPRIATE ANTIDIURETIC HORMONE SECRETION [None]
  - INJECTION SITE DISCOLOURATION [None]
  - INJECTION SITE SCAR [None]
  - MIGRAINE [None]
  - MUSCLE SPASMS [None]
  - PAIN IN EXTREMITY [None]
  - PSYCHOTIC DISORDER [None]
